FAERS Safety Report 6047689-1 (Version None)
Quarter: 2009Q1

REPORT INFORMATION
  Report Type: 
  Country: None (occurrence: None)
  Receive Date: 20090123
  Receipt Date: 20090119
  Transmission Date: 20090719
  Serious: No
  Sender: FDA-Public Use
  Company Number: US-JNJFOC-20090104861

PATIENT
  Sex: Female
  Weight: 50.8 kg

DRUGS (10)
  1. DURAGESIC-100 [Suspect]
     Indication: BACK PAIN
     Route: 062
  2. EFFEXOR [Concomitant]
     Indication: DEPRESSION
     Route: 048
  3. PLAVIX [Concomitant]
     Indication: CEREBROVASCULAR ACCIDENT
     Route: 048
  4. PREMARIN [Concomitant]
     Indication: HYSTERECTOMY
     Route: 048
  5. ZONISAMIDE [Concomitant]
     Indication: CONVULSION
     Route: 048
  6. CARISOPRODOL [Concomitant]
     Indication: MUSCLE RELAXANT THERAPY
  7. SIMVASTATIN [Concomitant]
     Route: 048
  8. KLONOPIN [Concomitant]
     Indication: NERVOUSNESS
     Route: 048
  9. XANAX [Concomitant]
     Indication: NERVOUSNESS
     Route: 048
  10. LEVOTHYROXINE SODIUM [Concomitant]
     Indication: THYROID DISORDER
     Route: 048

REACTIONS (4)
  - ABNORMAL BEHAVIOUR [None]
  - MEMORY IMPAIRMENT [None]
  - NOCTURNAL DYSPNOEA [None]
  - TREATMENT NONCOMPLIANCE [None]
